FAERS Safety Report 24328397 (Version 1)
Quarter: 2024Q3

REPORT INFORMATION
  Report Type: Spontaneous
  Country: US (occurrence: US)
  Receive Date: 20240917
  Receipt Date: 20240917
  Transmission Date: 20241017
  Serious: No
  Sender: DR REDDYS
  Company Number: US-DRL-USA-SPO/USA/24/0013302

PATIENT
  Age: 24 Year
  Sex: Male

DRUGS (2)
  1. LURASIDONE [Suspect]
     Active Substance: LURASIDONE
     Indication: Bipolar II disorder
  2. LURASIDONE [Suspect]
     Active Substance: LURASIDONE
     Indication: Bipolar disorder

REACTIONS (2)
  - Asthma [Recovering/Resolving]
  - Product use in unapproved indication [Unknown]
